FAERS Safety Report 4350787-1 (Version None)
Quarter: 2004Q2

REPORT INFORMATION
  Report Type: 
  Country: None (occurrence: None)
  Receive Date: 20040430
  Receipt Date: 20040407
  Transmission Date: 20050107
  Serious: Yes (Hospitalization)
  Sender: FDA-Public Use
  Company Number: AU-ROCHE-363882

PATIENT
  Age: 28 Year
  Sex: Male

DRUGS (4)
  1. ROCEPHIN [Suspect]
     Indication: DRUG USE FOR UNKNOWN INDICATION
     Dosage: TAKEN AT NIGHT. CEASED AFTER 1100 HOURS ON 06 APR 2004.
     Route: 040
     Dates: start: 20040405, end: 20040406
  2. VOLTAREN [Concomitant]
     Dates: end: 20040406
  3. NASONEX [Concomitant]
     Dosage: 1 DOSE FORM ADMINISTERED TO EACH NOSTRIL
     Route: 045
     Dates: end: 20040406
  4. GRISOVIN [Concomitant]
     Dosage: DOSAGE REGIMEN REPORTED AS 3/4.
     Dates: end: 20040406

REACTIONS (3)
  - DIZZINESS [None]
  - HEART RATE IRREGULAR [None]
  - NAUSEA [None]
